FAERS Safety Report 11393176 (Version 1)
Quarter: 2015Q3

REPORT INFORMATION
  Report Type: Spontaneous
  Country: US (occurrence: US)
  Receive Date: 20150818
  Receipt Date: 20150818
  Transmission Date: 20151125
  Serious: No
  Sender: FDA-Public Use
  Company Number: US-FRESENIUS KABI-FK201503930

PATIENT
  Age: 78 Year
  Sex: Female
  Weight: 42.22 kg

DRUGS (2)
  1. CREON [Concomitant]
     Active Substance: PANCRELIPASE AMYLASE\PANCRELIPASE LIPASE\PANCRELIPASE PROTEASE
     Indication: PANCREATITIS
     Route: 065
  2. CYANOCOBALAMIN INJECTION, USP [Suspect]
     Active Substance: CYANOCOBALAMIN
     Indication: VITAMIN B12 DECREASED
     Route: 030

REACTIONS (2)
  - Burning sensation [Not Recovered/Not Resolved]
  - Vitamin B12 increased [Not Recovered/Not Resolved]

NARRATIVE: CASE EVENT DATE: 201508
